FAERS Safety Report 4451801-5 (Version None)
Quarter: 2004Q3

REPORT INFORMATION
  Report Type: 
  Country: None (occurrence: None)
  Receive Date: 20040813
  Receipt Date: 20040430
  Transmission Date: 20050211
  Serious: No
  Sender: FDA-Public Use
  Company Number: S04-USA-03563-01

PATIENT
  Age: 66 Year
  Sex: Female

DRUGS (4)
  1. NAMENDA [Suspect]
     Indication: DEMENTIA
     Dosage: 15 MG QD PO
     Route: 048
     Dates: start: 20040430
  2. NAMENDA [Suspect]
     Indication: DEMENTIA
     Dosage: 5 MG QD PO
     Route: 048
     Dates: start: 20040416, end: 20040422
  3. NAMENDA [Suspect]
     Indication: DEMENTIA
     Dosage: 10 MG QD PO
     Route: 048
     Dates: start: 20040423, end: 20040429
  4. ARICEPT [Suspect]
     Indication: DEMENTIA
     Dates: start: 20040401

REACTIONS (2)
  - ABDOMINAL PAIN UPPER [None]
  - NON-CARDIAC CHEST PAIN [None]
